FAERS Safety Report 4543577-8 (Version None)
Quarter: 2005Q1

REPORT INFORMATION
  Report Type: 
  Country: None (occurrence: None)
  Receive Date: 20050103
  Receipt Date: 20040517
  Transmission Date: 20050727
  Serious: Yes (Death, Life-Threatening)
  Sender: FDA-Public Use
  Company Number: FR-GLAXOSMITHKLINE-B0333079A

PATIENT
  Age: 0 Month
  Sex: Male
  Weight: 2 kg

DRUGS (1)
  1. CLAVENTIN [Suspect]
     Indication: NECROTISING COLITIS
     Route: 042
     Dates: start: 20040511, end: 20040515

REACTIONS (20)
  - ACCIDENTAL OVERDOSE [None]
  - ANOXIA [None]
  - CATHETER RELATED INFECTION [None]
  - CEREBRAL HAEMORRHAGE [None]
  - CONVULSION [None]
  - CYTOLYTIC HEPATITIS [None]
  - GENERAL PHYSICAL HEALTH DETERIORATION [None]
  - HAEMODYNAMIC INSTABILITY [None]
  - HYPONATRAEMIA [None]
  - INTRAVENTRICULAR HAEMORRHAGE [None]
  - MEDICATION ERROR [None]
  - MULTI-ORGAN FAILURE [None]
  - NOSOCOMIAL INFECTION [None]
  - RENAL FAILURE [None]
  - RENAL TUBULAR NECROSIS [None]
  - RESPIRATORY FAILURE [None]
  - STAPHYLOCOCCAL INFECTION [None]
  - THROMBOCYTOPENIA [None]
  - TREMOR [None]
  - URAEMIC ENCEPHALOPATHY [None]
